FAERS Safety Report 23836370 (Version 9)
Quarter: 2025Q3

REPORT INFORMATION
  Report Type: Spontaneous
  Country: US (occurrence: US)
  Receive Date: 20240509
  Receipt Date: 20250716
  Transmission Date: 20251021
  Serious: Yes (Hospitalization, Disabling, Other)
  Sender: PFIZER
  Company Number: US-PFIZER INC-202400102977

PATIENT
  Age: 76 Year
  Sex: Female
  Weight: 54.43 kg

DRUGS (10)
  1. PREMARIN [Suspect]
     Active Substance: ESTROGENS, CONJUGATED
     Indication: Fibromyalgia
     Dosage: 1 TABLET BY MOUTH DAILY
     Route: 048
  2. PREMARIN [Suspect]
     Active Substance: ESTROGENS, CONJUGATED
     Indication: Osteoporosis
  3. ARTHROTEC [Suspect]
     Active Substance: DICLOFENAC SODIUM\MISOPROSTOL
     Indication: Fibromyalgia
     Dosage: ONCE A DAY BY MOUTH
     Route: 048
  4. ARTHROTEC [Suspect]
     Active Substance: DICLOFENAC SODIUM\MISOPROSTOL
     Indication: Osteoarthritis
     Dosage: [2 TABS DAILY]
  5. ARTHROTEC [Suspect]
     Active Substance: DICLOFENAC SODIUM\MISOPROSTOL
     Route: 048
     Dates: start: 2018
  6. VITAMIN D NOS [Concomitant]
     Active Substance: CHOLECALCIFEROL\ERGOCALCIFEROL
  7. REPATHA [Concomitant]
     Active Substance: EVOLOCUMAB
  8. AMLODIPINE [Concomitant]
     Active Substance: AMLODIPINE BESYLATE
  9. AZELASTINE [Concomitant]
     Active Substance: AZELASTINE
  10. ELIQUIS [Concomitant]
     Active Substance: APIXABAN

REACTIONS (7)
  - Cerebrovascular accident [Recovered/Resolved with Sequelae]
  - Atrial flutter [Recovered/Resolved with Sequelae]
  - Cataract [Unknown]
  - Embolism [Unknown]
  - Visual impairment [Not Recovered/Not Resolved]
  - Atrial fibrillation [Unknown]
  - Ocular vascular disorder [Recovered/Resolved with Sequelae]

NARRATIVE: CASE EVENT DATE: 20180101
